FAERS Safety Report 11993498 (Version 1)
Quarter: 2016Q1

REPORT INFORMATION
  Report Type: Spontaneous
  Country: US (occurrence: None)
  Receive Date: 20160202
  Receipt Date: 20160202
  Transmission Date: 20160526
  Serious: No
  Sender: FDA-Public Use
  Company Number: None

PATIENT
  Age: 61 Year
  Sex: Female

DRUGS (21)
  1. ONDANSETRON [Concomitant]
     Active Substance: ONDANSETRON
  2. ASPIRIN. [Concomitant]
     Active Substance: ASPIRIN
  3. DOXYCYCLINE. [Concomitant]
     Active Substance: DOXYCYCLINE
  4. AMOXICILLIN. [Concomitant]
     Active Substance: AMOXICILLIN
  5. DIAZEPAM. [Concomitant]
     Active Substance: DIAZEPAM
  6. LOSARTAN. [Concomitant]
     Active Substance: LOSARTAN
  7. OMEPRAZOLE. [Concomitant]
     Active Substance: OMEPRAZOLE
  8. ADVIL [Concomitant]
     Active Substance: IBUPROFEN
  9. SPRYCEL [Concomitant]
     Active Substance: DASATINIB
  10. MUCINEX [Concomitant]
     Active Substance: GUAIFENESIN
  11. TASIGNA [Suspect]
     Active Substance: NILOTINIB
     Indication: CHRONIC MYELOID LEUKAEMIA
     Route: 048
     Dates: start: 2009
  12. AZITHROMYCIN ANHYDROUS. [Concomitant]
     Active Substance: AZITHROMYCIN ANHYDROUS
  13. PHENERGAN [Concomitant]
     Active Substance: PROMETHAZINE HYDROCHLORIDE
  14. AMPICILLIN [Concomitant]
     Active Substance: AMPICILLIN
  15. HCTZ [Concomitant]
     Active Substance: HYDROCHLOROTHIAZIDE
  16. ATARAX [Concomitant]
     Active Substance: HYDROXYZINE\HYDROXYZINE HYDROCHLORIDE
  17. PROTONIX [Concomitant]
     Active Substance: PANTOPRAZOLE SODIUM
  18. FLECAINIDE [Concomitant]
     Active Substance: FLECAINIDE
  19. TRAIMTERENE/HCTZ [Concomitant]
  20. GLEEVEC [Concomitant]
     Active Substance: IMATINIB MESYLATE
  21. SULFAMETHOXAZOLE-TRIMETHOPRIM (SMZ) [Concomitant]
     Active Substance: SULFAMETHOXAZOLE\TRIMETHOPRIM

REACTIONS (3)
  - Arthralgia [None]
  - Onychalgia [None]
  - Pruritus [None]

NARRATIVE: CASE EVENT DATE: 201601
